FAERS Safety Report 4643887-X (Version None)
Quarter: 2005Q2

REPORT INFORMATION
  Report Type: 
  Country: None (occurrence: None)
  Receive Date: 20050421
  Receipt Date: 20050413
  Transmission Date: 20051028
  Serious: Yes (Hospitalization)
  Sender: FDA-Public Use
  Company Number: CHPA2005US01094

PATIENT
  Age: 57 Year
  Sex: Male
  Weight: 98.4 kg

DRUGS (1)
  1. BENEFIBER FIBER SUPPLEMENT SUGAR FREE (NCH)(GUAR GUM) POWDER [Suspect]
     Indication: NUTRITIONAL SUPPORT
     Dosage: SAMPLE PACKETS, ORAL
     Route: 048
     Dates: start: 20050330, end: 20050330

REACTIONS (3)
  - ABDOMINAL PAIN UPPER [None]
  - POOR QUALITY DRUG ADMINISTERED [None]
  - VOMITING [None]
